FAERS Safety Report 16918975 (Version 4)
Quarter: 2020Q1

REPORT INFORMATION
  Report Type: Spontaneous
  Country: US (occurrence: US)
  Receive Date: 20191015
  Receipt Date: 20200114
  Transmission Date: 20200409
  Serious: No
  Sender: FDA-Public Use
  Company Number: US-LEXICON PHARMACEUTICALS, INC-19-1606-00921

PATIENT
  Sex: Male

DRUGS (11)
  1. TELOTRISTAT ETHYL [Suspect]
     Active Substance: TELOTRISTAT ETHYL
     Route: 048
  2. OCTREOTIDE. [Concomitant]
     Active Substance: OCTREOTIDE
  3. CAPECITABINE. [Concomitant]
     Active Substance: CAPECITABINE
  4. TEMOZOLOMIDE. [Concomitant]
     Active Substance: TEMOZOLOMIDE
  5. LOMOTIL [Concomitant]
     Active Substance: ATROPINE SULFATE\DIPHENOXYLATE HYDROCHLORIDE
  6. TELOTRISTAT ETHYL [Suspect]
     Active Substance: TELOTRISTAT ETHYL
     Indication: NEUROENDOCRINE TUMOUR
     Route: 048
     Dates: start: 20190822
  7. CODEINE [Concomitant]
     Active Substance: CODEINE
  8. TINCTURE OF OPIUM [Concomitant]
     Active Substance: OPIUM
  9. LANREOTIDE [Concomitant]
     Active Substance: LANREOTIDE
  10. CREON [Concomitant]
     Active Substance: PANCRELIPASE AMYLASE\PANCRELIPASE LIPASE\PANCRELIPASE PROTEASE
     Dates: start: 2019
  11. IMODIUM [Concomitant]
     Active Substance: LOPERAMIDE HYDROCHLORIDE

REACTIONS (4)
  - Diarrhoea [Not Recovered/Not Resolved]
  - Emergency care [Unknown]
  - Off label use [Not Recovered/Not Resolved]
  - Weight decreased [Unknown]

NARRATIVE: CASE EVENT DATE: 2019
